FAERS Safety Report 20839170 (Version 4)
Quarter: 2022Q3

REPORT INFORMATION
  Report Type: Report from Study
  Country: US (occurrence: US)
  Receive Date: 20220517
  Receipt Date: 20220905
  Transmission Date: 20221026
  Serious: Yes (Hospitalization, Other)
  Sender: FDA-Public Use
  Company Number: US-ABBVIE-22K-163-4312963-00

PATIENT
  Sex: Male

DRUGS (4)
  1. IMBRUVICA [Suspect]
     Active Substance: IBRUTINIB
     Indication: Chronic lymphocytic leukaemia
     Route: 048
     Dates: start: 20211221, end: 202202
  2. IMBRUVICA [Suspect]
     Active Substance: IBRUTINIB
     Route: 048
     Dates: start: 2022, end: 202206
  3. IMBRUVICA [Suspect]
     Active Substance: IBRUTINIB
     Route: 048
     Dates: start: 2022, end: 2022
  4. IMBRUVICA [Suspect]
     Active Substance: IBRUTINIB
     Route: 048
     Dates: start: 2022

REACTIONS (15)
  - Heart rate increased [Unknown]
  - Aneurysm [Unknown]
  - Heart rate decreased [Unknown]
  - Dyspnoea [Unknown]
  - Palpitations [Unknown]
  - Heart valve calcification [Unknown]
  - Heart valve incompetence [Unknown]
  - Gastric disorder [Unknown]
  - Lymphadenopathy [Unknown]
  - Fatigue [Unknown]
  - Pneumonia [Unknown]
  - Oral mucosal blistering [Unknown]
  - Diarrhoea [Unknown]
  - Constipation [Unknown]
  - Haemorrhage [Unknown]

NARRATIVE: CASE EVENT DATE: 20220101
